FAERS Safety Report 23325872 (Version 5)
Quarter: 2025Q3

REPORT INFORMATION
  Report Type: Report from Study
  Country: US (occurrence: US)
  Receive Date: 20231221
  Receipt Date: 20250709
  Transmission Date: 20251020
  Serious: Yes (Hospitalization, Other)
  Sender: TAKEDA
  Company Number: US-TAKEDA-2022TUS049659

PATIENT
  Age: 47 Year
  Sex: Female
  Weight: 100 kg

DRUGS (31)
  1. HUMAN IMMUNOGLOBULIN G [Suspect]
     Active Substance: HUMAN IMMUNOGLOBULIN G
     Indication: Immune system disorder
     Dosage: 15 GRAM, 1/WEEK
     Dates: start: 20220719
  2. HUMAN IMMUNOGLOBULIN G [Suspect]
     Active Substance: HUMAN IMMUNOGLOBULIN G
     Indication: Hypergammaglobulinaemia
     Dosage: 15 GRAM, 1/WEEK
  3. HUMAN IMMUNOGLOBULIN G [Suspect]
     Active Substance: HUMAN IMMUNOGLOBULIN G
     Dosage: 15 GRAM, 1/WEEK
  4. HUMAN IMMUNOGLOBULIN G [Suspect]
     Active Substance: HUMAN IMMUNOGLOBULIN G
     Dosage: 15 GRAM, 1/WEEK
  5. CUVITRU [Suspect]
     Active Substance: HUMAN IMMUNOGLOBULIN G
     Indication: Immune system disorder
     Dosage: 12 GRAM, 1/WEEK
  6. CUVITRU [Suspect]
     Active Substance: HUMAN IMMUNOGLOBULIN G
     Indication: Hypergammaglobulinaemia
  7. VANCOMYCIN [Suspect]
     Active Substance: VANCOMYCIN
     Indication: Product used for unknown indication
  8. DIPHENHYDRAMINE HYDROCHLORIDE [Concomitant]
     Active Substance: DIPHENHYDRAMINE HYDROCHLORIDE
  9. FLUTICASONE PROPIONATE [Concomitant]
     Active Substance: FLUTICASONE PROPIONATE
  10. NURTEC ODT [Concomitant]
     Active Substance: RIMEGEPANT SULFATE
  11. ONDANSETRON HYDROCHLORIDE [Concomitant]
     Active Substance: ONDANSETRON HYDROCHLORIDE
  12. ACETAMINOPHEN [Concomitant]
     Active Substance: ACETAMINOPHEN
  13. PRILOSEC [Concomitant]
     Active Substance: OMEPRAZOLE MAGNESIUM
  14. SINGULAIR [Concomitant]
     Active Substance: MONTELUKAST SODIUM
  15. LAMICTAL [Concomitant]
     Active Substance: LAMOTRIGINE
  16. DILANTIN [Concomitant]
     Active Substance: PHENYTOIN
  17. PROAIR HFA [Concomitant]
     Active Substance: ALBUTEROL SULFATE
  18. NORETHINDRONE ACETATE [Concomitant]
     Active Substance: NORETHINDRONE ACETATE
  19. DIAZEPAM [Concomitant]
     Active Substance: DIAZEPAM
  20. Lmx [Concomitant]
  21. TOPAMAX [Concomitant]
     Active Substance: TOPIRAMATE
  22. LASTACAFT [Concomitant]
     Active Substance: ALCAFTADINE
     Dosage: UNK, QD
  23. DIPHENHYDRAMINE [Concomitant]
     Active Substance: DIPHENHYDRAMINE
  24. EPINEPHRINE [Concomitant]
     Active Substance: EPINEPHRINE
  25. BOTOX [Concomitant]
     Active Substance: ONABOTULINUMTOXINA
  26. VITAMIN D3 [Concomitant]
     Active Substance: CHOLECALCIFEROL
  27. FOLIC ACID [Concomitant]
     Active Substance: FOLIC ACID
  28. DRONABINOL [Concomitant]
     Active Substance: DRONABINOL
  29. QULIPTA [Concomitant]
     Active Substance: ATOGEPANT
  30. LIDOCAINE [Concomitant]
     Active Substance: LIDOCAINE
  31. MIDODRINE HYDROCHLORIDE [Concomitant]
     Active Substance: MIDODRINE HYDROCHLORIDE

REACTIONS (13)
  - Diverticulitis [Unknown]
  - Cellulitis orbital [Unknown]
  - Drug hypersensitivity [Unknown]
  - Post procedural infection [Unknown]
  - Cystitis [Unknown]
  - Dermatitis contact [Unknown]
  - Illness [Unknown]
  - Infusion related reaction [Unknown]
  - Sinus disorder [Unknown]
  - Ear disorder [Unknown]
  - Upper respiratory tract infection [Unknown]
  - Infusion site pain [Not Recovered/Not Resolved]
  - Headache [Unknown]

NARRATIVE: CASE EVENT DATE: 20230504
